FAERS Safety Report 17429267 (Version 1)
Quarter: 2020Q1

REPORT INFORMATION
  Report Type: Other
  Country: CA (occurrence: CA)
  Receive Date: 20200218
  Receipt Date: 20200218
  Transmission Date: 20200409
  Serious: Yes (Other)
  Sender: FDA-Public Use
  Company Number: CA-APOTEX-2020AP007739

PATIENT
  Age: 23 Year
  Sex: Male

DRUGS (2)
  1. MORPHINE SULFATE. [Suspect]
     Active Substance: MORPHINE SULFATE
     Indication: SUBSTANCE ABUSE
     Dosage: UNK
     Route: 065
  2. FENTANYL. [Suspect]
     Active Substance: FENTANYL
     Indication: SUBSTANCE ABUSE
     Dosage: UNK, UNKNOWN
     Route: 065

REACTIONS (3)
  - Psychomotor skills impaired [Unknown]
  - Substance abuse [Unknown]
  - Somnolence [Unknown]
